FAERS Safety Report 7500766-8 (Version None)
Quarter: 2011Q2

REPORT INFORMATION
  Report Type: 
  Country: None (occurrence: None)
  Receive Date: 20110524
  Receipt Date: 20110511
  Transmission Date: 20111010
  Serious: Yes (Other)
  Sender: FDA-Public Use
  Company Number: PHHY2009DE04279

PATIENT
  Sex: Female
  Weight: 69 kg

DRUGS (3)
  1. RADIOTHERAPY [Concomitant]
     Indication: BREAST CANCER
     Dates: start: 20060703, end: 20060809
  2. FEMARA [Suspect]
     Indication: BREAST CANCER
     Dosage: 2.5 MG, PER DAY
     Route: 048
     Dates: start: 20060619
  3. GLYBURIDE [Concomitant]

REACTIONS (2)
  - THROMBOPHLEBITIS SUPERFICIAL [None]
  - GENERAL PHYSICAL HEALTH DETERIORATION [None]
